FAERS Safety Report 7011748-7 (Version None)
Quarter: 2010Q3

REPORT INFORMATION
  Report Type: 
  Country: None (occurrence: None)
  Receive Date: 20100923
  Receipt Date: 20090522
  Transmission Date: 20110219
  Serious: No
  Sender: FDA-Public Use
  Company Number: US-WYE-H09490309

PATIENT
  Sex: Female
  Weight: 54.48 kg

DRUGS (3)
  1. PREMARIN [Suspect]
     Indication: OESTROGEN THERAPY
     Route: 048
     Dates: start: 19800101
  2. PREMARIN [Suspect]
     Route: 048
     Dates: start: 20090401
  3. MOTRIN [Concomitant]

REACTIONS (4)
  - ALOPECIA [None]
  - DYSPNOEA [None]
  - JOINT SWELLING [None]
  - WEIGHT INCREASED [None]
